FAERS Safety Report 12387574 (Version 2)
Quarter: 2016Q2

REPORT INFORMATION
  Report Type: Spontaneous
  Country: PH (occurrence: PH)
  Receive Date: 20160520
  Receipt Date: 20160607
  Transmission Date: 20160815
  Serious: Yes (Other)
  Sender: FDA-Public Use
  Company Number: PH-ROCHE-1759795

PATIENT
  Age: 52 Year
  Sex: Male

DRUGS (2)
  1. PEGASYS [Suspect]
     Active Substance: PEGINTERFERON ALFA-2A
     Indication: HEPATITIS C
     Dosage: EVERY SATURDAY?LAST INTAKE ON 24/OCT/2015?PERMANENTLY STOPPED ON 29/OCT/2015
     Route: 065
     Dates: start: 20150417, end: 20151024
  2. RIBAVIRIN. [Suspect]
     Active Substance: RIBAVIRIN
     Indication: HEPATITIS C
     Route: 065
     Dates: start: 20150417, end: 20151024

REACTIONS (1)
  - Protein total decreased [Unknown]
